FAERS Safety Report 10674003 (Version 1)
Quarter: 2014Q4

REPORT INFORMATION
  Report Type: Spontaneous
  Country: US (occurrence: None)
  Receive Date: 20141222
  Receipt Date: 20141222
  Transmission Date: 20150529
  Serious: Yes (Other)
  Sender: FDA-Public Use
  Company Number: 2013-US-003632

PATIENT
  Age: 43 Year
  Sex: Female
  Weight: 92.5 kg

DRUGS (7)
  1. MINOCCYCLINE HCL (MINOCYCLINE HYDROCHLORIDE) [Concomitant]
  2. XYREM [Suspect]
     Active Substance: SODIUM OXYBATE
     Indication: SOMNOLENCE
     Route: 048
     Dates: start: 201311, end: 2013
  3. XYREM [Suspect]
     Active Substance: SODIUM OXYBATE
     Indication: NARCOLEPSY
     Route: 048
     Dates: start: 201311, end: 2013
  4. DEXILANT [Concomitant]
     Active Substance: DEXLANSOPRAZOLE
  5. CITALOPRAM (CITALOPRAM HYDROBROMIDE) [Concomitant]
  6. VYVANSE [Concomitant]
     Active Substance: LISDEXAMFETAMINE DIMESYLATE
  7. PRAVASTATIN (PRAVASTATIN SODIUM) [Concomitant]

REACTIONS (7)
  - Weight decreased [None]
  - Postural orthostatic tachycardia syndrome [None]
  - Dizziness [None]
  - Drug interaction [None]
  - Dark circles under eyes [None]
  - Drug dose omission [None]
  - Wolff-Parkinson-White syndrome [None]

NARRATIVE: CASE EVENT DATE: 2013
